FAERS Safety Report 5537248-9 (Version None)
Quarter: 2007Q4

REPORT INFORMATION
  Report Type: 
  Country: None (occurrence: None)
  Receive Date: 20071207
  Receipt Date: 20071204
  Transmission Date: 20080405
  Serious: Yes (Other)
  Sender: FDA-Public Use
  Company Number: US-SP-2007-04164

PATIENT
  Age: 76 Year
  Sex: Male

DRUGS (1)
  1. BCG  THERAPEUTICS [Suspect]
     Indication: BLADDER CANCER
     Route: 043

REACTIONS (8)
  - ARTHRALGIA [None]
  - BACK PAIN [None]
  - BOVINE TUBERCULOSIS [None]
  - GAIT DISTURBANCE [None]
  - GROIN PAIN [None]
  - JOINT RANGE OF MOTION DECREASED [None]
  - JOINT TUBERCULOSIS [None]
  - PSOAS ABSCESS [None]
